FAERS Safety Report 6864191-5 (Version None)
Quarter: 2010Q3

REPORT INFORMATION
  Report Type: 
  Country: None (occurrence: None)
  Receive Date: 20100721
  Receipt Date: 20080312
  Transmission Date: 20110219
  Serious: No
  Sender: FDA-Public Use
  Company Number: US-PFIZER INC-2008024920

PATIENT
  Sex: Female
  Weight: 77.272 kg

DRUGS (7)
  1. CHANTIX [Suspect]
     Indication: SMOKING CESSATION THERAPY
     Route: 048
     Dates: start: 20080308
  2. EFFEXOR XR [Concomitant]
     Indication: DEPRESSION
     Route: 048
  3. DEPAKOTE [Concomitant]
     Indication: DEPRESSION
     Route: 048
  4. AMITRIPTYLINE HYDROCHLORIDE [Concomitant]
     Indication: DEPRESSION
     Route: 048
  5. SEROQUEL [Concomitant]
     Indication: DEPRESSION
     Route: 048
  6. CLONAZEPAM [Concomitant]
     Indication: MYALGIA
     Route: 048
  7. AMBIEN [Concomitant]
     Route: 048

REACTIONS (3)
  - ABNORMAL DREAMS [None]
  - DEPRESSION [None]
  - NAUSEA [None]
